FAERS Safety Report 4385883-6 (Version None)
Quarter: 2004Q2

REPORT INFORMATION
  Report Type: 
  Country: None (occurrence: None)
  Receive Date: 20040628
  Receipt Date: 20040428
  Transmission Date: 20050107
  Serious: Yes (Life-Threatening)
  Sender: FDA-Public Use
  Company Number: FR-GLAXOSMITHKLINE-B0331444B

PATIENT
  Age: 9 Year
  Sex: Male

DRUGS (3)
  1. RETROVIR [Suspect]
     Indication: ANTIVIRAL PROPHYLAXIS
     Route: 048
     Dates: start: 19941207, end: 19950119
  2. RETROVIR [Suspect]
     Indication: HIV INFECTION
  3. RETROVIR [Suspect]

REACTIONS (2)
  - DRUG EXPOSURE DURING PREGNANCY [None]
  - LYMPHOMA [None]
